FAERS Safety Report 20181455 (Version 1)
Quarter: 2021Q4

REPORT INFORMATION
  Report Type: Spontaneous
  Country: US (occurrence: US)
  Receive Date: 20211214
  Receipt Date: 20211214
  Transmission Date: 20220303
  Serious: No
  Sender: FDA-Public Use
  Company Number: US-PFIZER INC-2021778589

PATIENT
  Age: 66 Year
  Sex: Female

DRUGS (9)
  1. XELJANZ XR [Suspect]
     Active Substance: TOFACITINIB CITRATE
     Indication: Rheumatoid arthritis
     Dosage: 11 MG, 1X/DAY (TAKE 1 TABLET BY MOUTH ONCE DAILY)
     Route: 048
     Dates: start: 202102
  2. XELJANZ XR [Suspect]
     Active Substance: TOFACITINIB CITRATE
     Dosage: 11 MG, 1X/DAY (TAKE 1 TABLET BY MOUTH ONCE DAILY)
     Route: 048
     Dates: start: 202102
  3. ACETAMINOPHEN [Concomitant]
     Active Substance: ACETAMINOPHEN
  4. POTASSIUM BICARBONATE [Concomitant]
     Active Substance: POTASSIUM BICARBONATE
  5. CALCIUM CARBONATE [Concomitant]
     Active Substance: CALCIUM CARBONATE
  6. ROSUVASTATIN CALCIUM [Concomitant]
     Active Substance: ROSUVASTATIN CALCIUM
  7. FOLIC ACID [Concomitant]
     Active Substance: FOLIC ACID
  8. METHOTREXATE [Concomitant]
     Active Substance: METHOTREXATE
  9. VITAMIN D3 [Concomitant]
     Active Substance: CHOLECALCIFEROL
     Dosage: UNK

REACTIONS (3)
  - Urinary tract infection [Recovered/Resolved]
  - Blood urine present [Recovered/Resolved]
  - Therapy interrupted [Unknown]
